FAERS Safety Report 9522993 (Version 1)
Quarter: 2013Q3

REPORT INFORMATION
  Report Type: Spontaneous
  Country: US (occurrence: None)
  Receive Date: 20130905
  Receipt Date: 20130905
  Transmission Date: 20140515
  Serious: Yes (Hospitalization)
  Sender: FDA-Public Use
  Company Number: 2013037731

PATIENT
  Age: 37 Year
  Sex: Female

DRUGS (1)
  1. RHOPHYLAC [Suspect]
     Dosage: 1100 UG, 1 SINGLE DOSE; INTRAVENOUS (NOT OTHERWISE SPECIFIED)
     Dates: start: 20130627, end: 20130627

REACTIONS (7)
  - Cyanosis [None]
  - Hypothermia [None]
  - Asthenia [None]
  - Chills [None]
  - Tremor [None]
  - Arthralgia [None]
  - Exposure during pregnancy [None]
